FAERS Safety Report 4533922-1 (Version None)
Quarter: 2004Q4

REPORT INFORMATION
  Report Type: 
  Country: None (occurrence: None)
  Receive Date: 20041210
  Receipt Date: 20041026
  Transmission Date: 20050328
  Serious: No
  Sender: FDA-Public Use
  Company Number: 2004-00714

PATIENT
  Age: 76 Year
  Sex: Female

DRUGS (4)
  1. VELCADE [Suspect]
     Indication: MULTIPLE MYELOMA
     Dosage: 1.80 MG IV BOLUS
     Route: 040
     Dates: start: 20041012, end: 20041022
  2. PROCRIT (ERYTHROPOIETIN) [Concomitant]
  3. PAMIDRONATE DISODIUM [Concomitant]
  4. PERCOCET [Concomitant]

REACTIONS (2)
  - BONE PAIN [None]
  - PLASMACYTOMA [None]
